FAERS Safety Report 18080796 (Version 1)
Quarter: 2020Q3

REPORT INFORMATION
  Report Type: Spontaneous
  Country: US (occurrence: US)
  Receive Date: 20200728
  Receipt Date: 20200728
  Transmission Date: 20201103
  Serious: Yes (Hospitalization)
  Sender: FDA-Public Use
  Company Number: US-ASTRAZENECA-2020SE93057

PATIENT
  Sex: Female
  Weight: 45.4 kg

DRUGS (4)
  1. TAGRISSO [Suspect]
     Active Substance: OSIMERTINIB
     Indication: LUNG NEOPLASM MALIGNANT
     Route: 048
     Dates: start: 20200706
  2. HYDROXYUREA. [Concomitant]
     Active Substance: HYDROXYUREA
     Indication: PLATELET COUNT DECREASED
     Route: 048
     Dates: start: 20200706
  3. TAGRISSO [Suspect]
     Active Substance: OSIMERTINIB
     Indication: PULMONARY MASS
     Route: 048
     Dates: start: 20200706
  4. HYDROXYUREA. [Concomitant]
     Active Substance: HYDROXYUREA
     Indication: THROMBOCYTOSIS
     Route: 048
     Dates: start: 20200706

REACTIONS (5)
  - Delirium [Recovering/Resolving]
  - Blood sodium decreased [Recovered/Resolved]
  - Gait inability [Unknown]
  - Peripheral swelling [Unknown]
  - Dysstasia [Unknown]
